FAERS Safety Report 16842628 (Version 1)
Quarter: 2019Q3

REPORT INFORMATION
  Report Type: Report from Study
  Country: None (occurrence: RO)
  Receive Date: 20190924
  Receipt Date: 20190924
  Transmission Date: 20191005
  Serious: Yes (Hospitalization)
  Sender: FDA-Public Use
  Company Number: RO-ABBVIE-19K-135-2890498-00

PATIENT
  Age: 69 Year
  Sex: Female

DRUGS (5)
  1. MONOPOST [Concomitant]
     Active Substance: LATANOPROST
     Indication: GLAUCOMA
     Route: 047
  2. BETASERC [Concomitant]
     Active Substance: BETAHISTINE
     Indication: VERTIGO
     Route: 048
  3. BILOBIL [Concomitant]
     Active Substance: GINKGO
     Indication: VERTIGO
     Route: 048
  4. HUMIRA [Suspect]
     Active Substance: ADALIMUMAB
     Route: 058
     Dates: end: 20190816
  5. HUMIRA [Suspect]
     Active Substance: ADALIMUMAB
     Indication: CROHN^S DISEASE
     Route: 058
     Dates: start: 20170714

REACTIONS (3)
  - Gastric neoplasm [Recovering/Resolving]
  - Nausea [Recovering/Resolving]
  - Vomiting [Recovering/Resolving]

NARRATIVE: CASE EVENT DATE: 201908
